FAERS Safety Report 9264091 (Version 3)
Quarter: 2013Q3

REPORT INFORMATION
  Report Type: Spontaneous
  Country: IE (occurrence: IE)
  Receive Date: 20130430
  Receipt Date: 20130722
  Transmission Date: 20140515
  Serious: Yes (Death, Other)
  Sender: FDA-Public Use
  Company Number: IE-AMGEN-IRLSP2013029402

PATIENT
  Age: 61 Year
  Sex: Male

DRUGS (44)
  1. PROLIA [Suspect]
     Indication: OSTEOPOROSIS
     Dosage: 60 MG/ML, UNK
     Dates: start: 201103
  2. LIPITOR [Concomitant]
     Dosage: TAKE 1 AT NIGHT
  3. NEXIUM                             /01479302/ [Concomitant]
     Dosage: 40 MG, QD
  4. EMCOR [Concomitant]
     Dosage: 5 MG, QD
  5. SERETIDE [Concomitant]
     Route: 045
  6. SPIRIVA RESPIMAT [Concomitant]
     Dosage: 2.5 MUG, UNK
  7. ZYPREXA [Concomitant]
     Dosage: 2.5 MG, QD
  8. EXPUTEX [Concomitant]
     Dosage: 5 ML, TID
  9. ATROVENT UNIT DOSE [Concomitant]
     Dosage: 500MUG/2ML, USE VIA NEBULIZER FOUR TIMES A DAY
  10. SEROXAT CR [Concomitant]
     Dosage: 20 MG, TID
  11. ZITHROMAX UNO [Concomitant]
     Dosage: 250 MG, QD
  12. UNIPHYLLIN [Concomitant]
     Dosage: 200 MG, BID
  13. CALCICHEW D3 FORTE [Concomitant]
     Dosage: 500 MG/400 IU, QD
  14. GLUCOPHAGE S [Concomitant]
     Dosage: 850 MG, TAKE TWO TAB AT NIGHT
  15. AVELOX [Concomitant]
     Dosage: 400 MG, QD
  16. ZYDOL                              /00599202/ [Concomitant]
     Dosage: 50 MG, TAKE 2 CAPS FOUR TIMES A DAY
  17. PARALIEF [Concomitant]
     Dosage: 500 MG, AS NECESSARY TAKE TWO FOUR TIMES A DAY
  18. MOTILIUM                           /00498201/ [Concomitant]
     Dosage: 10 MG, AS NECESSARY, TID
  19. DIFENE [Concomitant]
     Dosage: 100 MG, QD
     Route: 054
  20. PALEXIA DEPOT [Concomitant]
     Dosage: 50 MG, BID
  21. KLACID                             /00984601/ [Concomitant]
     Dosage: 500 MG, QD
  22. EFFENTORA [Concomitant]
     Dosage: 100 MUG, BID
  23. ANXICALM                           /00017001/ [Concomitant]
     Dosage: 10 MG, AS NECESSARY
  24. MST CONTINUS [Concomitant]
     Dosage: 10 MG, QD
  25. ORAMORPH [Concomitant]
     Dosage: 2.5 ML, QID
  26. SOLPADOL [Concomitant]
     Dosage: 500 MG, QID
  27. COMBIVENT [Concomitant]
     Dosage: 2.5 ML, QID
  28. LYRICA [Concomitant]
     Dosage: 50 MG, QD, IN THE MOURNING
  29. FORSTEO [Concomitant]
     Dosage: 20 MUG, UNK
     Route: 058
  30. DIAMICRON [Concomitant]
     Dosage: 30 MG, QD
  31. CIPROXIN                           /00697201/ [Concomitant]
     Dosage: 750 MG, QD
  32. FUROSEMIDE                         /00032602/ [Concomitant]
     Dosage: 20 MG, QD
  33. MAXOLON [Concomitant]
     Dosage: 10 MG, TID
  34. TRADOL [Concomitant]
     Dosage: 100 MG, QD
  35. DELTACORTRIL                       /00016201/ [Concomitant]
     Dosage: 5 MG, TAKE 8 TABS AS A SINGLE DOSE
  36. BUSCOPAN [Concomitant]
     Dosage: 10 MG, TID
  37. TESTOGEL [Concomitant]
     Dosage: 50 MG/5GM,  APPLY EVERY DAY
  38. TARGIN [Concomitant]
     Dosage: 20MG/10MG , BID
  39. MYCOSTATIN [Concomitant]
     Dosage: TAKE ONE DROPPER FULL (1ML)
     Route: 048
  40. CHLOROMYCETIN                      /00011701/ [Concomitant]
     Dosage: 0.5 %, INSTILL ONE DROP
  41. AUGMENTIN                          /00756801/ [Concomitant]
     Dosage: 500 MG/ 125 MG, TID
  42. LAXOSE [Concomitant]
     Dosage: 5 ML, BID
  43. MAXIDEX                            /00016001/ [Concomitant]
     Dosage: UNK UNK, AS NECESSARY
  44. CYMBALTA [Concomitant]
     Dosage: 60 MG, IN THE MOURNING

REACTIONS (4)
  - Lower respiratory tract infection [Fatal]
  - Chronic obstructive pulmonary disease [Fatal]
  - Compression fracture [Unknown]
  - Pyrexia [Unknown]
